FAERS Safety Report 6770205-3 (Version None)
Quarter: 2010Q2

REPORT INFORMATION
  Report Type: 
  Country: None (occurrence: None)
  Receive Date: 20100615
  Receipt Date: 20100603
  Transmission Date: 20101027
  Serious: Yes (Hospitalization)
  Sender: FDA-Public Use
  Company Number: US-WYE-H15512610

PATIENT
  Sex: Female
  Weight: 138.47 kg

DRUGS (3)
  1. PRISTIQ [Suspect]
     Indication: FIBROMYALGIA
     Route: 048
     Dates: start: 20060101, end: 20100501
  2. SOMA [Concomitant]
     Indication: MUSCLE RELAXANT THERAPY
     Dosage: UNKNOWN
  3. IBUPROFEN [Concomitant]
     Indication: BACK PAIN
     Dosage: UNKNOWN

REACTIONS (3)
  - BLOOD POTASSIUM DECREASED [None]
  - PYREXIA [None]
  - WEIGHT DECREASED [None]
